FAERS Safety Report 11310805 (Version 1)
Quarter: 2015Q3

REPORT INFORMATION
  Report Type: Spontaneous
  Country: US (occurrence: US)
  Receive Date: 20150726
  Receipt Date: 20150726
  Transmission Date: 20151125
  Serious: Yes (Hospitalization)
  Sender: FDA-Public Use
  Company Number: US-CIPLA LTD.-2015US05984

PATIENT

DRUGS (3)
  1. CARBOPLATIN. [Suspect]
     Active Substance: CARBOPLATIN
     Indication: TRIPLE NEGATIVE BREAST CANCER
     Dosage: 6 CYCLES (OF 28 DAYS) OF AUC 5.0 ON DAY 1
     Route: 042
  2. PACLITAXEL. [Suspect]
     Active Substance: PACLITAXEL
     Indication: TRIPLE NEGATIVE BREAST CANCER
     Dosage: 6 CYCLES (OF 28 DAYS) OF 30 MIN IV INFUSION WITH 70 MG/M2, ON DAYS 1, 8, AND 15
  3. SUNITINIB [Suspect]
     Active Substance: SUNITINIB
     Indication: TRIPLE NEGATIVE BREAST CANCER
     Dosage: 6 CYCLES (OF 28 DAYS) AT 25 MG ORALLY, ONCE DAILY FOR EVERY 21 DAYS
     Route: 048

REACTIONS (2)
  - Pneumonia [Unknown]
  - Pulmonary embolism [Unknown]
